FAERS Safety Report 6105199-7 (Version None)
Quarter: 2009Q1

REPORT INFORMATION
  Report Type: 
  Country: None (occurrence: None)
  Receive Date: 20090304
  Receipt Date: 20090304
  Transmission Date: 20090719
  Serious: Yes (Hospitalization)
  Sender: FDA-Public Use
  Company Number: None

PATIENT
  Sex: Male
  Weight: 107 kg

DRUGS (8)
  1. DAUNORUBICIN HCL [Suspect]
     Dosage: 150 MG
  2. METHOTREXATE [Suspect]
     Dosage: 30 MG
  3. METHYLPREDNISOLONE 4MG TAB [Suspect]
     Dosage: 3920 MG
  4. PEG-L-ASPARAGINASE (K-H) [Suspect]
     Dosage: 5875 UNIT
  5. VINCRISTINE SULFATE [Suspect]
     Dosage: 5 MG
  6. ALLOPURINOL [Suspect]
     Dosage: 8400 MG
  7. CYTARABINE [Suspect]
     Dosage: 70 MG
  8. NEXIUM [Concomitant]

REACTIONS (7)
  - BLOOD GLUCOSE ABNORMAL [None]
  - GASTROINTESTINAL HAEMORRHAGE [None]
  - HAEMATOMA INFECTION [None]
  - HAEMOGLOBIN DECREASED [None]
  - MUSCLE SPASMS [None]
  - NECROTISING FASCIITIS [None]
  - NO THERAPEUTIC RESPONSE [None]
